APPROVED DRUG PRODUCT: VITAMIN D
Active Ingredient: ERGOCALCIFEROL
Strength: 50,000 IU
Dosage Form/Route: CAPSULE;ORAL
Application: A080704 | Product #001 | TE Code: AA
Applicant: BIONPHARMA INC
Approved: Approved Prior to Jan 1, 1982 | RLD: No | RS: No | Type: RX